FAERS Safety Report 25455335 (Version 3)
Quarter: 2025Q3

REPORT INFORMATION
  Report Type: Spontaneous
  Country: KZ (occurrence: KZ)
  Receive Date: 20250619
  Receipt Date: 20250721
  Transmission Date: 20251020
  Serious: Yes (Other)
  Sender: NOVARTIS
  Company Number: KZ-002147023-NVSC2025KZ095325

PATIENT
  Sex: Female

DRUGS (3)
  1. TAFINLAR [Suspect]
     Active Substance: DABRAFENIB MESYLATE
     Indication: Metastatic malignant melanoma
     Dosage: 300 MG, QD
     Route: 065
  2. TAFINLAR [Suspect]
     Active Substance: DABRAFENIB MESYLATE
     Dosage: 75 MG, QID
     Route: 065
     Dates: start: 202110
  3. MEKINIST [Suspect]
     Active Substance: TRAMETINIB DIMETHYL SULFOXIDE
     Indication: Metastatic malignant melanoma
     Dosage: 2 MG, QD (CONSTANTLY)
     Route: 065
     Dates: start: 202110

REACTIONS (15)
  - Liver disorder [Recovering/Resolving]
  - Cholecystitis chronic [Recovering/Resolving]
  - Venous angioma of brain [Recovering/Resolving]
  - Basal cell carcinoma [Recovering/Resolving]
  - Exophthalmos [Recovering/Resolving]
  - Vasogenic cerebral oedema [Recovering/Resolving]
  - Haemangioma of bone [Recovering/Resolving]
  - Pleural disorder [Recovering/Resolving]
  - Bone metabolism disorder [Recovering/Resolving]
  - Metabolic dysfunction-associated liver disease [Recovering/Resolving]
  - Metabolic function test abnormal [Recovering/Resolving]
  - Hepatic steatosis [Recovering/Resolving]
  - Lung disorder [Recovering/Resolving]
  - Cerebral disorder [Recovering/Resolving]
  - Lung consolidation [Recovering/Resolving]

NARRATIVE: CASE EVENT DATE: 20220121
